FAERS Safety Report 7199177-7 (Version None)
Quarter: 2010Q4

REPORT INFORMATION
  Report Type: 
  Country: None (occurrence: None)
  Receive Date: 20101228
  Receipt Date: 20101220
  Transmission Date: 20110411
  Serious: Yes (Death)
  Sender: FDA-Public Use
  Company Number: LB-CELGENEUS-093-C5013-10122289

PATIENT

DRUGS (1)
  1. CC-5013 [Suspect]
     Route: 048

REACTIONS (1)
  - INFECTION [None]
